FAERS Safety Report 26054319 (Version 1)
Quarter: 2025Q4

REPORT INFORMATION
  Report Type: Report from Study
  Country: US (occurrence: US)
  Receive Date: 20251117
  Receipt Date: 20251117
  Transmission Date: 20260118
  Serious: Yes (Other)
  Sender: NOVARTIS
  Company Number: US-002147023-NVSC2021US042579

PATIENT
  Age: 0 Year

DRUGS (4)
  1. GILENYA [Suspect]
     Active Substance: FINGOLIMOD HYDROCHLORIDE
     Indication: Foetal exposure during pregnancy
     Dosage: MATERNAL EXPOSURE DURING PREGNANCY FROM 2010 AT A DOSE OF 0.5 MG, QD
     Route: 064
  2. GILENYA [Suspect]
     Active Substance: FINGOLIMOD HYDROCHLORIDE
     Dosage: MATERNAL EXPOSURE DURING PREGNANCY FROM 12 APR 2019 TO JUL 2020 AT A DOSE OF 0.5 MG, QD
     Route: 064
  3. METHYLPREDNISOLONE [Concomitant]
     Active Substance: METHYLPREDNISOLONE
     Indication: Foetal exposure during pregnancy
     Dosage: MATERNAL EXPOSURE DURING PREGNANCY FROM UNKNOWN DATE AT AN UNKNOWN DOSE
     Route: 064
  4. COPAXONE [Concomitant]
     Active Substance: GLATIRAMER ACETATE
     Indication: Foetal exposure during pregnancy
     Dosage: MATERNAL EXPOSURE DURING PREGNANCY FROM AN UNKNOWN DATE AT AN UNKNOWN DOSE
     Route: 064

REACTIONS (3)
  - Premature baby [Unknown]
  - Foetal exposure during pregnancy [Unknown]
  - Normal newborn [Unknown]

NARRATIVE: CASE EVENT DATE: 20210206
